FAERS Safety Report 8473990-8 (Version None)
Quarter: 2012Q2

REPORT INFORMATION
  Report Type: 
  Country: None (occurrence: None)
  Receive Date: 20120628
  Receipt Date: 20120405
  Transmission Date: 20120825
  Serious: Yes (Other)
  Sender: FDA-Public Use
  Company Number: US-MYLANLABS-2012S1005499

PATIENT
  Age: 45 Year
  Sex: Female

DRUGS (6)
  1. CLOZAPINE [Suspect]
     Route: 048
     Dates: start: 20120306, end: 20120306
  2. DEPAKOTE ER [Concomitant]
  3. INDERAL [Concomitant]
     Dosage: PRN
     Route: 048
  4. RISPERDAL [Concomitant]
  5. ATIVAN [Concomitant]
  6. ZYPREXA [Concomitant]

REACTIONS (2)
  - LEUKOPENIA [None]
  - GRANULOCYTOPENIA [None]
